FAERS Safety Report 11930655 (Version 1)
Quarter: 2016Q1

REPORT INFORMATION
  Report Type: Report from Study
  Country: CA (occurrence: CA)
  Receive Date: 20160120
  Receipt Date: 20160120
  Transmission Date: 20160526
  Serious: Yes (Hospitalization)
  Sender: FDA-Public Use
  Company Number: CA-JNJFOC-20160109510

PATIENT
  Sex: Female
  Weight: 50 kg

DRUGS (3)
  1. REMICADE [Suspect]
     Active Substance: INFLIXIMAB
     Indication: CROHN^S DISEASE
     Route: 042
  2. SOLU-MEDROL [Concomitant]
     Active Substance: METHYLPREDNISOLONE SODIUM SUCCINATE
     Indication: PREMEDICATION
     Route: 065
     Dates: start: 20151130
  3. REMICADE [Suspect]
     Active Substance: INFLIXIMAB
     Indication: CROHN^S DISEASE
     Route: 042
     Dates: start: 20151130

REACTIONS (10)
  - Hypersomnia [Unknown]
  - Vomiting [Unknown]
  - Chills [Unknown]
  - Fatigue [Unknown]
  - Hyperhidrosis [Unknown]
  - Headache [Unknown]
  - Arthralgia [Unknown]
  - Infusion related reaction [Unknown]
  - Rectal haemorrhage [Unknown]
  - Erythema nodosum [Unknown]
